FAERS Safety Report 11211876 (Version 2)
Quarter: 2015Q3

REPORT INFORMATION
  Report Type: Spontaneous
  Country: JP (occurrence: JP)
  Receive Date: 20150623
  Receipt Date: 20150714
  Transmission Date: 20151125
  Serious: Yes (Hospitalization)
  Sender: FDA-Public Use
  Company Number: JP-MYLANLABS-2015M1020131

PATIENT

DRUGS (1)
  1. QUININE [Suspect]
     Active Substance: QUININE
     Indication: PYREXIA
     Route: 048

REACTIONS (4)
  - Acute kidney injury [Recovering/Resolving]
  - Granulomatous liver disease [Recovered/Resolved]
  - Tubulointerstitial nephritis [Recovering/Resolving]
  - Chronic kidney disease [Not Recovered/Not Resolved]
